FAERS Safety Report 10072297 (Version 1)
Quarter: 2014Q2

REPORT INFORMATION
  Report Type: Spontaneous
  Country: US (occurrence: None)
  Receive Date: 20140410
  Receipt Date: 20140410
  Transmission Date: 20141212
  Serious: Yes (Hospitalization)
  Sender: FDA-Public Use
  Company Number: None

PATIENT
  Age: 83 Year
  Sex: Male

DRUGS (1)
  1. ZYTIGA [Suspect]
     Indication: NEOPLASM PROSTATE
     Dosage: 1000MG (4 TABS) ONCE DAILY
     Route: 048
     Dates: start: 20130726, end: 20140409

REACTIONS (2)
  - Pancreatitis [None]
  - Cholelithiasis [None]
